FAERS Safety Report 7499684-3 (Version None)
Quarter: 2011Q2

REPORT INFORMATION
  Report Type: 
  Country: None (occurrence: None)
  Receive Date: 20110524
  Receipt Date: 20110513
  Transmission Date: 20111010
  Serious: Yes (Hospitalization, Other)
  Sender: FDA-Public Use
  Company Number: FR-PFIZER INC-2011108013

PATIENT
  Age: 74 Year
  Sex: Female

DRUGS (8)
  1. BISOPROLOL FUMARATE [Concomitant]
     Dosage: UNK
  2. HYDROCHLOROTHIAZIDE [Suspect]
     Dosage: 160 MG DAILY
     Route: 048
  3. EUPRESSYL [Concomitant]
     Dosage: UNK
  4. LEVOTHYROXINE SODIUM [Suspect]
     Dosage: 25 MCG DAILY
     Route: 048
  5. FLECAINIDE ACETATE [Suspect]
     Dosage: 150 MG, 1X/DAY
     Route: 048
  6. PREVISCAN [Concomitant]
     Dosage: UNK
  7. ZANIDIP [Concomitant]
     Dosage: UNK
  8. CORDARONE [Suspect]
     Dosage: 200 MG, 1X/DAY
     Route: 048
     Dates: end: 20110330

REACTIONS (4)
  - INAPPROPRIATE ANTIDIURETIC HORMONE SECRETION [None]
  - HYPONATRAEMIA [None]
  - CEREBELLAR SYNDROME [None]
  - VOMITING [None]
